FAERS Safety Report 7298925-5 (Version None)
Quarter: 2011Q1

REPORT INFORMATION
  Report Type: 
  Country: None (occurrence: None)
  Receive Date: 20110217
  Receipt Date: 20110208
  Transmission Date: 20110831
  Serious: Yes (Hospitalization)
  Sender: FDA-Public Use
  Company Number: PHHY2011US10186

PATIENT
  Age: 55 Year
  Sex: Male
  Weight: 125 kg

DRUGS (16)
  1. NORVASC [Concomitant]
     Indication: HYPERTENSION
     Dosage: 10 MG, QD
     Route: 048
     Dates: start: 20060926
  2. CYMBALTA [Concomitant]
     Indication: ANXIETY
     Dosage: 60 MG, QD
     Route: 048
     Dates: start: 20080710
  3. SOLU-MEDROL [Concomitant]
     Dosage: 1 G MONTHLY
     Route: 048
     Dates: start: 20000606
  4. PROVIGIL [Concomitant]
     Dosage: 200 MG, QD
     Route: 048
     Dates: start: 20080710
  5. ZANAFLEX [Concomitant]
     Indication: MUSCLE SPASTICITY
     Dosage: 8 MG, QD
     Route: 048
     Dates: start: 20070710
  6. TYLENOL W/ CODEINE NO. 3 [Concomitant]
     Indication: HEADACHE
     Dosage: 2 * 300 MG, 30 MG DAILY
     Route: 048
     Dates: start: 19840505
  7. WELLBUTRIN [Concomitant]
     Indication: DEPRESSION
     Dosage: 75 MG, QD
     Route: 048
     Dates: start: 20030710
  8. FLEET ENEMA                             /CAN/ [Concomitant]
     Indication: CONSTIPATION
     Dosage: 7 G  19 G DAILY```
     Route: 048
     Dates: start: 20040710
  9. LITHANE [Concomitant]
     Indication: DEPRESSION
     Dosage: 300 MG, QD
     Route: 048
     Dates: start: 20040710
  10. BACLOFEN [Concomitant]
     Dosage: 180 MG, QD
     Route: 048
     Dates: start: 19850620
  11. NEURONTIN [Concomitant]
     Indication: PAIN
     Dosage: 2400 MG, QD
     Route: 048
     Dates: start: 20090910
  12. KLONOPIN [Concomitant]
     Indication: FRUSTRATION
     Dosage: 0.5 MG, QD
     Route: 048
     Dates: start: 20030710
  13. MIRALAX [Concomitant]
     Indication: CONSTIPATION
     Dosage: 3400 G, QD
     Route: 048
     Dates: start: 20090710
  14. GILENYA [Suspect]
     Indication: MULTIPLE SCLEROSIS
     Dosage: 0.5 MG, QD
     Route: 048
     Dates: start: 20101130
  15. TRICOR [Concomitant]
     Indication: BLOOD TRIGLYCERIDES INCREASED
     Dosage: 48 MG, QD
     Route: 048
     Dates: start: 20100105
  16. SENOKOT [Concomitant]
     Indication: CONSTIPATION
     Dosage: UNK UKN, UNK
     Route: 048
     Dates: start: 20070710

REACTIONS (1)
  - SEPSIS [None]
